FAERS Safety Report 6386757-1 (Version None)
Quarter: 2009Q4

REPORT INFORMATION
  Report Type: 
  Country: None (occurrence: None)
  Receive Date: 20091002
  Receipt Date: 20090928
  Transmission Date: 20100525
  Serious: Yes (Other)
  Sender: FDA-Public Use
  Company Number: A0809334A

PATIENT
  Age: 81 Year
  Sex: Female

DRUGS (4)
  1. COREG CR [Suspect]
     Indication: HYPERTENSION
     Dosage: 20MG PER DAY
     Route: 048
     Dates: start: 20090801, end: 20090914
  2. CRESTOR [Concomitant]
  3. LASIX [Concomitant]
  4. PLAVIX [Concomitant]

REACTIONS (4)
  - DRY EYE [None]
  - FATIGUE [None]
  - HYPOTENSION [None]
  - LOSS OF CONSCIOUSNESS [None]
